FAERS Safety Report 6576527-3 (Version None)
Quarter: 2010Q1

REPORT INFORMATION
  Report Type: 
  Country: None (occurrence: None)
  Receive Date: 20100210
  Receipt Date: 20100128
  Transmission Date: 20100710
  Serious: Yes (Other)
  Sender: FDA-Public Use
  Company Number: RU-BAYER-201014918GPV

PATIENT
  Age: 46 Year
  Sex: Female

DRUGS (1)
  1. BETAFERON [Suspect]
     Indication: MULTIPLE SCLEROSIS
     Route: 058
     Dates: start: 20081001

REACTIONS (6)
  - DIZZINESS [None]
  - EYE PAIN [None]
  - HYPERTENSIVE CRISIS [None]
  - MIGRAINE [None]
  - MONOPARESIS [None]
  - VISUAL ACUITY REDUCED [None]
